FAERS Safety Report 12891839 (Version 1)
Quarter: 2016Q4

REPORT INFORMATION
  Report Type: Spontaneous
  Country: BG (occurrence: BG)
  Receive Date: 20161028
  Receipt Date: 20161028
  Transmission Date: 20170207
  Serious: Yes (Hospitalization)
  Sender: FDA-Public Use
  Company Number: BG-SUN PHARMACEUTICAL INDUSTRIES LTD-2016RR-126838

PATIENT
  Age: 11 Year
  Sex: Female

DRUGS (3)
  1. AMIKACIN [Concomitant]
     Active Substance: AMIKACIN
     Indication: ENDOCARDITIS
     Route: 065
  2. CEFUROXIME. [Suspect]
     Active Substance: CEFUROXIME
     Indication: ENDOCARDITIS
     Dosage: UNK
     Route: 065
  3. GENTAMICIN. [Concomitant]
     Active Substance: GENTAMICIN
     Indication: ENDOCARDITIS
     Route: 065

REACTIONS (2)
  - Pain in extremity [Recovering/Resolving]
  - Leukopenia [Recovered/Resolved]
